FAERS Safety Report 8201023-7 (Version None)
Quarter: 2012Q1

REPORT INFORMATION
  Report Type: 
  Country: None (occurrence: None)
  Receive Date: 20120308
  Receipt Date: 20120227
  Transmission Date: 20120608
  Serious: Yes (Other)
  Sender: FDA-Public Use
  Company Number: 2012MA002665

PATIENT
  Age: 43 Year
  Sex: Female

DRUGS (4)
  1. ALBUTEROL SULATE [Suspect]
     Indication: COUGH
     Dosage: 100 UG;BID;INH
     Route: 055
  2. ALBUTEROL SULATE [Suspect]
     Indication: ASTHMA
     Dosage: 100 UG;BID;INH
     Route: 055
  3. SALMETEROL (SALMETEROL) [Suspect]
     Indication: ASTHMA
     Dosage: 100 UG;QD;INH
     Route: 055
  4. SALMETEROL (SALMETEROL) [Suspect]
     Indication: COUGH
     Dosage: 100 UG;QD;INH
     Route: 055

REACTIONS (1)
  - CYSTITIS HAEMORRHAGIC [None]
